FAERS Safety Report 7940422-5 (Version None)
Quarter: 2011Q4

REPORT INFORMATION
  Report Type: 
  Country: None (occurrence: None)
  Receive Date: 20111127
  Receipt Date: 20111122
  Transmission Date: 20120403
  Serious: Yes (Other)
  Sender: FDA-Public Use
  Company Number: BR-SANOFI-AVENTIS-2011SA076948

PATIENT
  Age: 69 Year
  Sex: Female

DRUGS (1)
  1. INDAPAMIDE [Suspect]
     Route: 048

REACTIONS (2)
  - CONVULSION [None]
  - COMA [None]
